FAERS Safety Report 10256023 (Version 1)
Quarter: 2014Q2

REPORT INFORMATION
  Report Type: Spontaneous
  Country: CZ (occurrence: CZ)
  Receive Date: 20140624
  Receipt Date: 20140624
  Transmission Date: 20141212
  Serious: Yes (Life-Threatening, Hospitalization, Other)
  Sender: FDA-Public Use
  Company Number: CZ-JNJFOC-20140614732

PATIENT
  Age: 4 Year
  Sex: Female
  Weight: 14 kg

DRUGS (9)
  1. REMICADE [Suspect]
     Indication: COLITIS ULCERATIVE
     Route: 042
     Dates: start: 20140604, end: 20140604
  2. KALII CHLORIDUM [Concomitant]
     Indication: ELECTROLYTE SUBSTITUTION THERAPY
     Route: 048
  3. VIGANTOL [Concomitant]
     Indication: VITAMIN SUPPLEMENTATION
     Route: 048
  4. SOLU-MEDROL [Concomitant]
     Indication: PREMEDICATION
     Route: 051
     Dates: start: 20140604, end: 20140604
  5. NATRII CHLORIDUM [Concomitant]
     Route: 041
  6. DITHIADEN [Concomitant]
     Indication: PREMEDICATION
     Route: 048
  7. PENTASA [Concomitant]
     Indication: COLITIS ULCERATIVE
     Route: 048
  8. HELICID [Concomitant]
     Indication: PROPHYLAXIS
     Route: 048
  9. PREDNISON [Concomitant]
     Indication: COLITIS ULCERATIVE
     Route: 048

REACTIONS (1)
  - Anaphylactic reaction [Recovered/Resolved]
